FAERS Safety Report 22215606 (Version 1)
Quarter: 2023Q2

REPORT INFORMATION
  Report Type: Spontaneous
  Country: US (occurrence: None)
  Receive Date: 20230416
  Receipt Date: 20230416
  Transmission Date: 20230722
  Serious: No
  Sender: FDA-Public Use
  Company Number: 2023A073789

PATIENT
  Sex: Female
  Weight: 58.5 kg

DRUGS (8)
  1. FARXIGA [Suspect]
     Active Substance: DAPAGLIFLOZIN PROPANEDIOL
     Indication: Type 2 diabetes mellitus
     Route: 048
  2. LEVOTHYROXINE [Concomitant]
     Active Substance: LEVOTHYROXINE
  3. NIFEDIPINE [Concomitant]
     Active Substance: NIFEDIPINE
     Dosage: AT NIGHT
  4. ATORVASTATIN [Concomitant]
     Active Substance: ATORVASTATIN
  5. JANUVIA [Concomitant]
     Active Substance: SITAGLIPTIN PHOSPHATE
  6. ELIQUIS [Concomitant]
     Active Substance: APIXABAN
  7. QUINAPRIL [Concomitant]
     Active Substance: QUINAPRIL
  8. METOPROLOL [Concomitant]
     Active Substance: METOPROLOL

REACTIONS (2)
  - Vulvovaginal pruritus [Unknown]
  - Pruritus [Recovered/Resolved]
